FAERS Safety Report 8338337-6 (Version None)
Quarter: 2012Q2

REPORT INFORMATION
  Report Type: 
  Country: None (occurrence: None)
  Receive Date: 20120504
  Receipt Date: 20120427
  Transmission Date: 20120825
  Serious: Yes (Life-Threatening)
  Sender: FDA-Public Use
  Company Number: GB-PFIZER INC-2012104475

PATIENT
  Age: 85 Year
  Sex: Female

DRUGS (6)
  1. PREDNISOLONE [Concomitant]
     Dosage: UNK
  2. LANSOPRAZOLE [Concomitant]
     Dosage: UNK
  3. AMITRIPTYLINE HCL [Concomitant]
     Dosage: UNK
  4. RAMIPRIL [Suspect]
     Indication: HYPERTENSION
     Dosage: 2.5 MG, UNK
     Route: 048
     Dates: start: 20120403, end: 20120401
  5. AMLODIPINE [Concomitant]
     Dosage: UNK
  6. INDAPAMIDE [Concomitant]
     Dosage: UNK

REACTIONS (1)
  - CEREBROVASCULAR ACCIDENT [None]
